FAERS Safety Report 14391600 (Version 2)
Quarter: 2018Q1

REPORT INFORMATION
  Report Type: Spontaneous
  Country: US (occurrence: US)
  Receive Date: 20180116
  Receipt Date: 20180125
  Transmission Date: 20180509
  Serious: Yes (Life-Threatening, Hospitalization)
  Sender: FDA-Public Use
  Company Number: US-BAYER-2018-007494

PATIENT
  Age: 16 Year
  Sex: Female

DRUGS (1)
  1. PARACETAMOL [Suspect]
     Active Substance: ACETAMINOPHEN

REACTIONS (5)
  - Coma [Recovered/Resolved]
  - Intentional overdose [Recovering/Resolving]
  - Metabolic acidosis [None]
  - Hypotension [None]
  - Hypothermia [None]
